FAERS Safety Report 7184677-6 (Version None)
Quarter: 2010Q4

REPORT INFORMATION
  Report Type: 
  Country: None (occurrence: None)
  Receive Date: 20101222
  Receipt Date: 20100524
  Transmission Date: 20110411
  Serious: No
  Sender: FDA-Public Use
  Company Number: US-AMGEN-TCS414575

PATIENT

DRUGS (2)
  1. ENBREL [Suspect]
     Indication: RHEUMATOID ARTHRITIS
     Dosage: 50 MG, QWK
     Route: 058
     Dates: start: 20090827
  2. METHOTREXATE [Concomitant]

REACTIONS (6)
  - COUGH [None]
  - DRUG INEFFECTIVE [None]
  - DYSPHONIA [None]
  - MULTIPLE ALLERGIES [None]
  - NASOPHARYNGITIS [None]
  - SINUS CONGESTION [None]
